FAERS Safety Report 13600963 (Version 1)
Quarter: 2017Q2

REPORT INFORMATION
  Report Type: Spontaneous
  Country: US (occurrence: US)
  Receive Date: 20170531
  Receipt Date: 20170531
  Transmission Date: 20170830
  Serious: Yes (Life-Threatening, Hospitalization)
  Sender: FDA-Public Use
  Company Number: None

PATIENT
  Age: 70 Year
  Sex: Male

DRUGS (1)
  1. SULFAMETHOXAZOLE/TRIMETHOPRIM [Suspect]
     Active Substance: SULFAMETHOXAZOLE\TRIMETHOPRIM
     Indication: PARONYCHIA
     Dosage: 800/160MG BI, PO
     Route: 048
     Dates: start: 20161019, end: 20161021

REACTIONS (4)
  - Gastrointestinal haemorrhage [None]
  - Duodenal ulcer [None]
  - Therapy cessation [None]
  - Anaemia [None]

NARRATIVE: CASE EVENT DATE: 20161102
